FAERS Safety Report 13170374 (Version 1)
Quarter: 2017Q1

REPORT INFORMATION
  Report Type: Report from Study
  Country: DE (occurrence: DE)
  Receive Date: 20170131
  Receipt Date: 20170131
  Transmission Date: 20170428
  Serious: Yes (Hospitalization, Other)
  Sender: FDA-Public Use
  Company Number: DE-PFIZER INC-2016393597

PATIENT
  Age: 34 Year
  Sex: Male
  Weight: 92 kg

DRUGS (5)
  1. DEXAMETHASONE. [Suspect]
     Active Substance: DEXAMETHASONE
     Dosage: 40 MG, UNK
     Dates: start: 20160731
  2. CYTARABINE. [Suspect]
     Active Substance: CYTARABINE
     Dosage: 4200 MG, UNK
     Dates: start: 20160801
  3. TEMSIROLIMUS [Suspect]
     Active Substance: TEMSIROLIMUS
     Dosage: 25 MG, UNK
     Dates: start: 20160729
  4. RITUXIMAB [Suspect]
     Active Substance: RITUXIMAB
     Dosage: 787.5 MG, UNK
     Dates: start: 20160730
  5. CISPLATIN. [Suspect]
     Active Substance: CISPLATIN
     Dosage: 210 MG, UNK
     Dates: start: 20160731

REACTIONS (2)
  - Febrile bone marrow aplasia [Recovered/Resolved]
  - Febrile infection [Recovered/Resolved]

NARRATIVE: CASE EVENT DATE: 20160814
